FAERS Safety Report 7796889-9 (Version None)
Quarter: 2011Q4

REPORT INFORMATION
  Report Type: 
  Country: None (occurrence: None)
  Receive Date: 20111003
  Receipt Date: 20110923
  Transmission Date: 20120403
  Serious: Yes (Other)
  Sender: FDA-Public Use
  Company Number: US-ACCORD-010727

PATIENT
  Age: 80 Year
  Sex: Female
  Weight: 57 kg

DRUGS (4)
  1. METOPROLOL TARTRATE [Concomitant]
  2. SERTRALINE HYDROCHLORIDE [Concomitant]
  3. CLONAZEPAM [Suspect]
     Indication: SOMNOLENCE
     Dosage: 1.00-MG-1.0DAYS /ORAL
     Route: 048
     Dates: start: 20110801, end: 20110817
  4. HYDROCHLORTHIAZID [Concomitant]

REACTIONS (3)
  - ROAD TRAFFIC ACCIDENT [None]
  - SOMNOLENCE [None]
  - SOMNAMBULISM [None]
